FAERS Safety Report 8454346-0 (Version None)
Quarter: 2012Q2

REPORT INFORMATION
  Report Type: 
  Country: None (occurrence: None)
  Receive Date: 20120621
  Receipt Date: 20120403
  Transmission Date: 20120825
  Serious: No
  Sender: FDA-Public Use
  Company Number: US-ALLERGAN-1204755US

PATIENT
  Age: 84 Year
  Sex: Female

DRUGS (2)
  1. REFRESH TEARS [Concomitant]
     Indication: DRY EYE
     Route: 047
  2. LUMIGAN [Suspect]
     Indication: GLAUCOMA
     Dosage: 2 GTT, UNK
     Route: 047
     Dates: start: 20090101

REACTIONS (2)
  - GROWTH OF EYELASHES [None]
  - TRICHORRHEXIS [None]
